FAERS Safety Report 7411498-9 (Version None)
Quarter: 2011Q2

REPORT INFORMATION
  Report Type: 
  Country: None (occurrence: None)
  Receive Date: 20110413
  Receipt Date: 20110401
  Transmission Date: 20111010
  Serious: Yes (Other)
  Sender: FDA-Public Use
  Company Number: PHHY2011US13087

PATIENT
  Age: 56 Year
  Sex: Female
  Weight: 61 kg

DRUGS (4)
  1. CALCIUM [Concomitant]
  2. RECLAST [Suspect]
     Dosage: 5 MG/100 ML
     Route: 042
     Dates: start: 20101020
  3. MAGNESIUM [Concomitant]
  4. VITAMIN D [Concomitant]
     Dosage: UNK

REACTIONS (3)
  - FACIAL PAIN [None]
  - WRIST FRACTURE [None]
  - PAIN IN JAW [None]
